FAERS Safety Report 12776278 (Version 3)
Quarter: 2017Q4

REPORT INFORMATION
  Report Type: Report from Study
  Country: DE (occurrence: DE)
  Receive Date: 20160923
  Receipt Date: 20171229
  Transmission Date: 20180320
  Serious: Yes (Hospitalization)
  Sender: FDA-Public Use
  Company Number: PHHY2016DE065875

PATIENT
  Sex: Female
  Weight: 75 kg

DRUGS (10)
  1. DOXAZOSIN [Concomitant]
     Active Substance: DOXAZOSIN\DOXAZOSIN MESYLATE
     Indication: OEDEMA PERIPHERAL
  2. AROMASIN [Suspect]
     Active Substance: EXEMESTANE
     Indication: BREAST CANCER METASTATIC
     Dosage: 25 MG, QD
     Route: 048
     Dates: start: 20150609, end: 20160321
  3. DOXAZOSIN [Concomitant]
     Active Substance: DOXAZOSIN\DOXAZOSIN MESYLATE
     Indication: RIGHT VENTRICULAR FAILURE
     Dosage: 2 MG, (0-0-0.5)
     Route: 065
     Dates: start: 201603, end: 201603
  4. AFINITOR [Suspect]
     Active Substance: EVEROLIMUS
     Dosage: 5 MG, QD
     Route: 048
     Dates: start: 20150901, end: 20160321
  5. DOXAZOSIN [Concomitant]
     Active Substance: DOXAZOSIN\DOXAZOSIN MESYLATE
     Indication: DYSPNOEA EXERTIONAL
     Dosage: 2 MG (0-0.5-0.5)
     Route: 065
     Dates: end: 20160328
  6. DOXAZOSIN [Concomitant]
     Active Substance: DOXAZOSIN\DOXAZOSIN MESYLATE
     Indication: HYPERTENSION
  7. AFINITOR [Suspect]
     Active Substance: EVEROLIMUS
     Dosage: 10 MG, QD
     Route: 048
     Dates: start: 20150804, end: 20150831
  8. METOPROLOL. [Concomitant]
     Active Substance: METOPROLOL
     Indication: HYPERTENSION
     Dosage: 95 MG (1-0-0)
     Route: 065
     Dates: start: 2016, end: 20160328
  9. METOPROLOL. [Concomitant]
     Active Substance: METOPROLOL
     Dosage: 95 MG (1-0-0)
     Route: 065
  10. AFINITOR [Suspect]
     Active Substance: EVEROLIMUS
     Indication: BREAST CANCER METASTATIC
     Dosage: 5 MG, QD
     Route: 048
     Dates: start: 20150609, end: 20150803

REACTIONS (22)
  - Oedema peripheral [Recovered/Resolved]
  - Left ventricular dysfunction [Recovered/Resolved]
  - Hypoxia [Recovered/Resolved]
  - Bronchitis chronic [Recovered/Resolved]
  - Malaise [Unknown]
  - Pleural effusion [Recovered/Resolved]
  - Blood lactate dehydrogenase increased [Unknown]
  - Dyspnoea exertional [Recovered/Resolved]
  - Emphysema [Recovered/Resolved]
  - Lung hyperinflation [Recovered/Resolved]
  - Haemoglobin decreased [Unknown]
  - Aspartate aminotransferase increased [Unknown]
  - Dyspnoea [Unknown]
  - Fatigue [Unknown]
  - Pneumonitis [Recovered/Resolved]
  - Right ventricular failure [Recovered/Resolved]
  - Hypoventilation [Recovered/Resolved]
  - Gamma-glutamyltransferase increased [Unknown]
  - Cardiac failure [Recovered/Resolved]
  - Oxygen saturation decreased [Recovered/Resolved]
  - C-reactive protein increased [Unknown]
  - Alanine aminotransferase increased [Unknown]

NARRATIVE: CASE EVENT DATE: 20160321
